FAERS Safety Report 7342727-8 (Version None)
Quarter: 2011Q1

REPORT INFORMATION
  Report Type: 
  Country: None (occurrence: None)
  Receive Date: 20110301
  Receipt Date: 20110214
  Transmission Date: 20110831
  Serious: Yes (Other)
  Sender: FDA-Public Use
  Company Number: DSJ-2011-03431

PATIENT
  Age: 63 Year
  Sex: Female

DRUGS (2)
  1. INDAPAMIDE [Suspect]
     Dosage: PER ORAL
     Route: 048
     Dates: start: 20110204
  2. BENICAR [Suspect]
     Indication: HYPERTENSION
     Dosage: 40 MG (40 MG, 1 IN 1 D), PER ORAL
     Route: 048
     Dates: start: 20110204

REACTIONS (1)
  - BLOOD PRESSURE INCREASED [None]
